FAERS Safety Report 19781073 (Version 2)
Quarter: 2021Q3

REPORT INFORMATION
  Report Type: Spontaneous
  Country: JP (occurrence: JP)
  Receive Date: 20210902
  Receipt Date: 20210909
  Transmission Date: 20211014
  Serious: Yes (Hospitalization, Other)
  Sender: FDA-Public Use
  Company Number: JP-PFIZER INC-202101013504

PATIENT
  Age: 71 Year
  Sex: Male

DRUGS (22)
  1. DOCETAXEL. [Suspect]
     Active Substance: DOCETAXEL
     Dosage: 70 MG/M2, CYCLIC, EVERY 3 WEEKS, DCF THERAPY, DAY 26 OF ADMISSION
     Dates: start: 2020, end: 2020
  2. DOCETAXEL. [Suspect]
     Active Substance: DOCETAXEL
     Dosage: 70 MG/M2, CYCLIC, EVERY 3 WEEKS, DCF THERAPY, DAY 48 OF ADMISSION
     Dates: start: 2020, end: 2020
  3. CISPLATIN. [Suspect]
     Active Substance: CISPLATIN
     Indication: OESOPHAGEAL CARCINOMA
     Dosage: 70 MG/M2, CYCLIC, EVERY 3 WEEKS ON DAY 1, DCF THERAPY, DAY 5 OF ADMISSION
     Dates: start: 202009, end: 202009
  4. CISPLATIN. [Suspect]
     Active Substance: CISPLATIN
     Dosage: 70 MG/M2, CYCLIC, EVERY 3 WEEKS, DCF THERAPY, DAY 48 OF ADMISSION
     Dates: start: 2020, end: 2020
  5. APREPITANT. [Concomitant]
     Active Substance: APREPITANT
     Dosage: 80 MG, 1X/DAY, DAY 2?5
     Dates: start: 2020, end: 2020
  6. DOCETAXEL. [Suspect]
     Active Substance: DOCETAXEL
     Indication: OESOPHAGEAL CARCINOMA
     Dosage: 70 MG/M2, CYCLIC, EVERY 3 WEEKS ON DAY 1, DCF THERAPY, DAY 5 OF ADMISSION
     Dates: start: 202009, end: 202009
  7. DOMPERIDONE [Concomitant]
     Active Substance: DOMPERIDONE
     Dosage: 30 MG, 1X/DAY
  8. PEGFILGRASTIM [Concomitant]
     Active Substance: PEGFILGRASTIM
     Dosage: 3.6 MG/TIME
  9. MAGNESIUM SULFATE HEPTAHYDRATE [Concomitant]
     Active Substance: MAGNESIUM SULFATE HEPTAHYDRATE
     Dosage: 20 MEQ, 1X/DAY
  10. RABEPRAZOLE [Concomitant]
     Active Substance: RABEPRAZOLE
     Dosage: 10 MG, 1X/DAY
  11. PALONOSETRON HYDROCHLORIDE. [Concomitant]
     Active Substance: PALONOSETRON HYDROCHLORIDE
     Dosage: 0.75 MG, 1X/DAY
  12. DEXAMETHASONE SODIUM PHOSPHATE. [Concomitant]
     Active Substance: DEXAMETHASONE SODIUM PHOSPHATE
     Dosage: 9.9 MG, 1X/DAY, ON DAY 1
     Dates: start: 202009, end: 202009
  13. FLUOROURACIL. [Suspect]
     Active Substance: FLUOROURACIL
     Dosage: 750 MG/M2, CYCLIC, EVERY 3 WEEKS, DCF THERAPY, FROM DAY 26 OF ADMISSION
     Dates: start: 2020, end: 2020
  14. JUZENTAIHOTO [ANGELICA ACUTILOBA ROOT;ASTRAGALUS SPP. ROOT;ATRACTYLODE [Concomitant]
     Active Substance: HERBALS
     Dosage: 7.5 G, 1X/DAY
  15. APREPITANT. [Concomitant]
     Active Substance: APREPITANT
     Dosage: 125 MG, 1X/DAY, ON DAY 1
     Dates: start: 202009, end: 202009
  16. D?MANNITOL [Concomitant]
     Active Substance: MANNITOL
     Dosage: 60 G, 1X/DAY
  17. HEPARIN SODIUM. [Concomitant]
     Active Substance: HEPARIN SODIUM
     Dosage: 10000 UNITS/DAY
  18. CISPLATIN. [Suspect]
     Active Substance: CISPLATIN
     Dosage: 70 MG/M2, CYCLIC, EVERY 3 WEEKS, DCF THERAPY, DAY 26 OF ADMISSION
     Dates: start: 2020, end: 2020
  19. CEFEPIME [Concomitant]
     Active Substance: CEFEPIME HYDROCHLORIDE
     Dosage: 2 G, 1X/DAY
  20. DEXAMETHASONE SODIUM PHOSPHATE. [Concomitant]
     Active Substance: DEXAMETHASONE SODIUM PHOSPHATE
     Dosage: 3.3 MG, 1X/DAY, DAY 2?4
     Dates: start: 2020, end: 2020
  21. FLUOROURACIL. [Suspect]
     Active Substance: FLUOROURACIL
     Indication: OESOPHAGEAL CARCINOMA
     Dosage: 750 MG/M2, CYCLIC, EVERY 3 WEEKS FROM DAYS 1?5, DCF THERAPY, DAY 5 OF ADMISSION
     Dates: start: 202009, end: 2020
  22. FLUOROURACIL. [Suspect]
     Active Substance: FLUOROURACIL
     Dosage: 750 MG/M2, CYCLIC, EVERY 3 WEEKS, DCF THERAPY, FROM DAY 48 OF ADMISSION
     Dates: start: 2020, end: 2020

REACTIONS (2)
  - Hyponatraemia [Recovering/Resolving]
  - Inappropriate antidiuretic hormone secretion [Recovering/Resolving]

NARRATIVE: CASE EVENT DATE: 2020
